FAERS Safety Report 8828606 (Version 1)
Quarter: 2012Q4

REPORT INFORMATION
  Report Type: 
  Country: US (occurrence: US)
  Receive Date: 20121004
  Receipt Date: 20121004
  Transmission Date: 20130627
  Serious: Yes (Other)
  Sender: FDA-Public Use
  Company Number: US-TEVA-362386USA

PATIENT
  Sex: Female

DRUGS (1)
  1. PARAGARD 380A [Suspect]
     Indication: CONTRACEPTION
     Route: 015
     Dates: start: 201110, end: 20120821

REACTIONS (6)
  - Blighted ovum [Unknown]
  - Emotional distress [Unknown]
  - Abdominal pain lower [Unknown]
  - Device dislocation [Recovered/Resolved]
  - Menstruation delayed [Unknown]
  - Drug ineffective [Unknown]
